FAERS Safety Report 4320025-4 (Version None)
Quarter: 2004Q1

REPORT INFORMATION
  Report Type: 
  Country: None (occurrence: None)
  Receive Date: 20040319
  Receipt Date: 20030407
  Transmission Date: 20041129
  Serious: Yes (Hospitalization, Other)
  Sender: FDA-Public Use
  Company Number: WAES 0304USA00870

PATIENT
  Age: 46 Year
  Sex: Male
  Weight: 105 kg

DRUGS (7)
  1. CORICIDIN [Concomitant]
     Indication: HYPERSENSITIVITY
  2. ALLEGRA-D [Concomitant]
     Indication: HYPERSENSITIVITY
  3. FLONASE [Concomitant]
     Indication: HYPERSENSITIVITY
  4. WESTCORT [Concomitant]
     Indication: HYPERSENSITIVITY
  5. SINGULAIR [Concomitant]
     Indication: HYPERSENSITIVITY
  6. ELIDEL [Concomitant]
     Indication: HYPERSENSITIVITY
  7. VIOXX [Suspect]
     Indication: INTERVERTEBRAL DISC DEGENERATION
     Route: 048
     Dates: start: 20010417, end: 20010819

REACTIONS (8)
  - DEEP VEIN THROMBOSIS [None]
  - GASTROOESOPHAGEAL REFLUX DISEASE [None]
  - INJURY [None]
  - PAIN [None]
  - PULMONARY EMBOLISM [None]
  - SKIN ULCER [None]
  - SLEEP APNOEA SYNDROME [None]
  - VENOUS STASIS [None]
